FAERS Safety Report 18664684 (Version 2)
Quarter: 2021Q1

REPORT INFORMATION
  Report Type: Spontaneous
  Country: US (occurrence: US)
  Receive Date: 20201225
  Receipt Date: 20210204
  Transmission Date: 20210419
  Serious: Yes (Hospitalization)
  Sender: FDA-Public Use
  Company Number: NVSC2020US333750

PATIENT
  Sex: Female

DRUGS (3)
  1. PIQRAY [Suspect]
     Active Substance: ALPELISIB
     Dosage: 150 MG, UNKNOWN
     Route: 065
     Dates: start: 20201119
  2. PIQRAY [Suspect]
     Active Substance: ALPELISIB
     Indication: PRODUCT USED FOR UNKNOWN INDICATION
     Dosage: UNK
     Route: 065
  3. PIQRAY [Suspect]
     Active Substance: ALPELISIB
     Dosage: UNK (HALF DOSE)
     Route: 065

REACTIONS (7)
  - Incorrect dose administered [Unknown]
  - Eating disorder [Unknown]
  - Malaise [Unknown]
  - Somnolence [Unknown]
  - Blood glucose increased [Unknown]
  - Decreased appetite [Unknown]
  - Illness [Unknown]
